FAERS Safety Report 6772731-X (Version None)
Quarter: 2010Q2

REPORT INFORMATION
  Report Type: 
  Country: None (occurrence: None)
  Receive Date: 20100616
  Receipt Date: 20100607
  Transmission Date: 20101027
  Serious: Yes (Other)
  Sender: FDA-Public Use
  Company Number: GB-PFIZER INC-2010071537

PATIENT
  Age: 70 Year
  Sex: Male

DRUGS (10)
  1. METRONIDAZOLE [Suspect]
     Dosage: 400 MG, TDS
     Route: 048
  2. CIPROFLOXACIN [Interacting]
     Dosage: 750 MG, 2X/DAY
  3. ACETYLSALICYLIC ACID [Interacting]
     Dosage: 300 MG, UNK
  4. ACETYLSALICYLIC ACID [Interacting]
     Dosage: 75 MG, UNK
  5. MEROPENEM [Interacting]
     Dosage: 2 G, 2X/DAY
     Route: 042
  6. TEICOPLANIN [Interacting]
     Dosage: 400 MG, 1X/DAY
     Route: 030
  7. WARFARIN [Interacting]
     Indication: EMBOLISM
  8. ERYTHROMYCIN [Interacting]
     Dosage: 250 MG, UNK
     Route: 048
  9. CLOPIDOGREL [Interacting]
     Dosage: 300 MG, UNK
  10. CLOPIDOGREL [Interacting]
     Dosage: 75 MG, UNK

REACTIONS (3)
  - DRUG INTERACTION [None]
  - HYPHAEMA [None]
  - INTERNATIONAL NORMALISED RATIO INCREASED [None]
